FAERS Safety Report 15046508 (Version 1)
Quarter: 2018Q2

REPORT INFORMATION
  Report Type: Spontaneous
  Country: GB (occurrence: GB)
  Receive Date: 20180621
  Receipt Date: 20180621
  Transmission Date: 20180711
  Serious: Yes (Hospitalization)
  Sender: FDA-Public Use
  Company Number: GB-009507513-1806GBR008232

PATIENT
  Age: 78 Year
  Sex: Female
  Weight: 65 kg

DRUGS (9)
  1. ADCAL (CALCIUM CARBONATE) [Concomitant]
     Active Substance: CALCIUM CARBONATE
     Dosage: 2 DF, QD
     Dates: start: 20180524
  2. WARFARIN SODIUM. [Concomitant]
     Active Substance: WARFARIN SODIUM
     Dosage: PRESCRIBED BY AN OUTSIDE ANTICOAG CLINIC ...
     Dates: start: 20091202
  3. RAMIPRIL. [Concomitant]
     Active Substance: RAMIPRIL
     Dates: start: 20180122
  4. OLANZAPINE. [Concomitant]
     Active Substance: OLANZAPINE
     Dosage: USE AS DIRECTED
     Dates: start: 20171113
  5. SPIRONOLACTONE. [Concomitant]
     Active Substance: SPIRONOLACTONE
     Dosage: 1 DF, QD
     Dates: start: 20180122
  6. IBUPROFEN. [Concomitant]
     Active Substance: IBUPROFEN
     Dosage: APPLY
     Dates: start: 20180424, end: 20180514
  7. ALENDRONATE SODIUM. [Suspect]
     Active Substance: ALENDRONATE SODIUM
     Dates: start: 20180524
  8. ACETAMINOPHEN AND CODEINE [Concomitant]
     Active Substance: ACETAMINOPHEN\CODEINE PHOSPHATE
     Dosage: TAKE 1 OR 2 4 TIMES/DAY
     Dates: start: 20180307, end: 20180410
  9. AMLODIPINE [Concomitant]
     Active Substance: AMLODIPINE BESYLATE
     Dates: start: 20180122, end: 20180524

REACTIONS (1)
  - Gastrointestinal haemorrhage [Recovering/Resolving]

NARRATIVE: CASE EVENT DATE: 20180524
